FAERS Safety Report 8837629 (Version 1)
Quarter: 2012Q4

REPORT INFORMATION
  Report Type: 
  Country: US (occurrence: US)
  Receive Date: 20121012
  Receipt Date: 20121012
  Transmission Date: 20130627
  Serious: Yes (Other)
  Sender: FDA-Public Use
  Company Number: US-ROCHE-1139957

PATIENT
  Sex: Male
  Weight: 85 kg

DRUGS (2)
  1. PROTROPIN [Suspect]
     Indication: GROWTH HORMONE DEFICIENCY
     Route: 058
  2. DILANTIN [Concomitant]
     Route: 065

REACTIONS (2)
  - Convulsion [Unknown]
  - Confusional state [Unknown]
